FAERS Safety Report 16021585 (Version 1)
Quarter: 2019Q1

REPORT INFORMATION
  Report Type: Report from Study
  Country: AU (occurrence: AU)
  Receive Date: 20190301
  Receipt Date: 20190301
  Transmission Date: 20190418
  Serious: Yes (Hospitalization, Other)
  Sender: FDA-Public Use
  Company Number: AU-ROCHE-2272904

PATIENT
  Age: 54 Year
  Sex: Female

DRUGS (1)
  1. OCRELIZUMAB. [Suspect]
     Active Substance: OCRELIZUMAB
     Indication: RELAPSING-REMITTING MULTIPLE SCLEROSIS
     Dosage: ONGOING
     Route: 041
     Dates: start: 20180907

REACTIONS (6)
  - Fall [Unknown]
  - Hyperthyroidism [Not Recovered/Not Resolved]
  - Dizziness [Unknown]
  - Spinal fracture [Unknown]
  - Hypothyroidism [Not Recovered/Not Resolved]
  - Balance disorder [Unknown]

NARRATIVE: CASE EVENT DATE: 201811
